FAERS Safety Report 20304098 (Version 1)
Quarter: 2022Q1

REPORT INFORMATION
  Report Type: Report from Study
  Country: CN (occurrence: CN)
  Receive Date: 20220106
  Receipt Date: 20220106
  Transmission Date: 20220423
  Serious: No
  Sender: FDA-Public Use
  Company Number: CN-KARYOPHARM-2021KPT001613

PATIENT
  Age: 33 Year
  Sex: Male

DRUGS (5)
  1. SELINEXOR [Suspect]
     Active Substance: SELINEXOR
     Indication: Acute myeloid leukaemia
     Dosage: 60 MG, 2X/WEEK
     Route: 065
     Dates: start: 20211113, end: 20211130
  2. CLADRIBINE [Concomitant]
     Active Substance: CLADRIBINE
     Dosage: 5 MG/M2
  3. AZACITIDINE [Concomitant]
     Active Substance: AZACITIDINE
     Dosage: 100 MG/M2
  4. CYTARABINE [Concomitant]
     Active Substance: CYTARABINE
     Dosage: 90 MG, Q12H (DAY 1 - 7)
  5. IDARUBICIN [Concomitant]
     Active Substance: IDARUBICIN
     Dosage: 10 MG/M2, DAY 1 - 3
     Route: 065
     Dates: start: 20210923

REACTIONS (3)
  - Decreased appetite [Recovered/Resolved]
  - Nausea [Recovered/Resolved]
  - Vomiting [Recovered/Resolved]

NARRATIVE: CASE EVENT DATE: 20211114
